FAERS Safety Report 10775399 (Version 1)
Quarter: 2015Q1

REPORT INFORMATION
  Report Type: Report from Study
  Country: CA (occurrence: None)
  Receive Date: 20150205
  Receipt Date: 20150205
  Transmission Date: 20150721
  Serious: Yes (Hospitalization)
  Sender: FDA-Public Use
  Company Number: 2015FE00231

PATIENT
  Age: 79 Year
  Sex: Male

DRUGS (5)
  1. MAVIK (TRANDOLAPRIL) [Concomitant]
  2. DEGARELIX [Suspect]
     Active Substance: DEGARELIX
     Indication: PROSTATE CANCER
     Dosage: 240 MG, ONCE/SINGLE, SUBCUTANEOUS
     Route: 058
     Dates: start: 20141003
  3. ACETYLSALICYLIC ACID [Concomitant]
     Active Substance: ASPIRIN
  4. RABEPRAZOLE [Concomitant]
     Active Substance: RABEPRAZOLE
  5. ATORVASTATIN [Concomitant]
     Active Substance: ATORVASTATIN

REACTIONS (5)
  - Blood sodium decreased [None]
  - Muscle spasms [None]
  - Injection site inflammation [None]
  - Paraesthesia [None]
  - Injection site erythema [None]

NARRATIVE: CASE EVENT DATE: 201501
